FAERS Safety Report 6975279-2 (Version None)
Quarter: 2010Q3

REPORT INFORMATION
  Report Type: 
  Country: None (occurrence: None)
  Receive Date: 20100910
  Receipt Date: 20090303
  Transmission Date: 20110219
  Serious: No
  Sender: FDA-Public Use
  Company Number: US-WYE-H08437509

PATIENT
  Sex: Female
  Weight: 56.75 kg

DRUGS (10)
  1. PRISTIQ [Suspect]
     Indication: DEPRESSION
     Route: 048
     Dates: start: 20090127
  2. PRISTIQ [Suspect]
     Indication: ANXIETY
  3. ASPIRIN [Concomitant]
  4. TENORMIN [Concomitant]
  5. LORAZEPAM [Concomitant]
  6. LIPITOR [Concomitant]
  7. EXFORGE [Concomitant]
  8. BENICAR [Concomitant]
  9. NORVASC [Concomitant]
  10. RAMIPRIL [Concomitant]

REACTIONS (2)
  - DRUG INEFFECTIVE [None]
  - DRY MOUTH [None]
